FAERS Safety Report 20225477 (Version 2)
Quarter: 2022Q2

REPORT INFORMATION
  Report Type: Spontaneous
  Country: CN (occurrence: None)
  Receive Date: 20211224
  Receipt Date: 20220423
  Transmission Date: 20220721
  Serious: Yes (Other)
  Sender: FDA-Public Use
  Company Number: CN-ROCHE-2986956

PATIENT
  Age: 64 Year
  Sex: Male

DRUGS (15)
  1. AVASTIN [Suspect]
     Active Substance: BEVACIZUMAB
     Indication: Colon cancer metastatic
     Dosage: 04-JUN-2020 TO 27-JUN-2020,19-JUL-2020 TO 09-AUG-2020,30-AUG-2020 TO 20-?SEP-2020
     Route: 065
  2. AVASTIN [Suspect]
     Active Substance: BEVACIZUMAB
     Dosage: 10-MAR-2021 TO 10-APR-2021, 26-APR-2021 TO 26-MAY-2021
     Route: 065
  3. AVASTIN [Suspect]
     Active Substance: BEVACIZUMAB
     Route: 065
     Dates: start: 20210620, end: 20210708
  4. AVASTIN [Suspect]
     Active Substance: BEVACIZUMAB
     Route: 065
     Dates: start: 20210801, end: 20210824
  5. AVASTIN [Suspect]
     Active Substance: BEVACIZUMAB
     Route: 065
     Dates: start: 20210915, end: 20211006
  6. CAPECITABINE [Concomitant]
     Active Substance: CAPECITABINE
     Indication: Colon cancer metastatic
     Dosage: 04-JUN-2020 TO 27-JUN-2020,19-JUL-2020 TO 09-AUG-2020,30-AUG-2020 TO 20-SEP-2020
  7. CAPECITABINE [Concomitant]
     Active Substance: CAPECITABINE
     Dates: start: 20201011, end: 20210103
  8. OXALIPLATIN [Concomitant]
     Active Substance: OXALIPLATIN
     Indication: Colon cancer metastatic
     Dosage: 04-JUN-2020 TO 27-JUN-2020,19-JUL-2020 TO 09-AUG-2020,30-AUG-2020 TO 20-SEP-2020
  9. IRINOTECAN [Concomitant]
     Active Substance: IRINOTECAN
     Indication: Colon cancer metastatic
     Dosage: 10-MAR-2021 TO 10-APR-2021, 26-APR-2021 TO 26-MAY-2021
  10. IRINOTECAN [Concomitant]
     Active Substance: IRINOTECAN
     Dates: start: 20210620, end: 20210708
  11. IRINOTECAN [Concomitant]
     Active Substance: IRINOTECAN
     Dates: start: 20210801, end: 20210824
  12. IRINOTECAN [Concomitant]
     Active Substance: IRINOTECAN
     Dates: start: 20210925, end: 20211006
  13. REGORAFENIB [Concomitant]
     Active Substance: REGORAFENIB
     Indication: Colon cancer metastatic
     Route: 048
  14. LEUCOVORIN CALCIUM [Concomitant]
     Active Substance: LEUCOVORIN CALCIUM
     Indication: Colon cancer metastatic
     Dosage: 10-MAR-2021 TO 10-APR-2021, 26-APR-2021 TO 26-MAY-2021
  15. FLUOROURACIL [Concomitant]
     Active Substance: FLUOROURACIL
     Indication: Colon cancer metastatic
     Dosage: 10-MAR-2021 TO 10-APR-2021, 26-APR-2021 TO 26-MAY-2021

REACTIONS (2)
  - Myelosuppression [Unknown]
  - Gastrointestinal disorder [Unknown]
